FAERS Safety Report 6736820-8 (Version None)
Quarter: 2010Q2

REPORT INFORMATION
  Report Type: 
  Country: None (occurrence: None)
  Receive Date: 20100521
  Receipt Date: 20100511
  Transmission Date: 20101027
  Serious: Yes (Hospitalization)
  Sender: FDA-Public Use
  Company Number: MX-ELI_LILLY_AND_COMPANY-MX201004007972

PATIENT
  Age: 9 Year
  Sex: Male

DRUGS (3)
  1. ZYPREXA [Suspect]
     Indication: PSYCHOTIC DISORDER
     Dosage: 20 MG, DAILY (1/D)
     Route: 065
     Dates: start: 20100101
  2. VALPROAT [Concomitant]
     Dosage: UNK, UNKNOWN
     Route: 065
  3. CLONAZEPAM [Concomitant]
     Dosage: UNK, UNKNOWN
     Route: 065

REACTIONS (2)
  - OFF LABEL USE [None]
  - PSYCHOMOTOR HYPERACTIVITY [None]
